FAERS Safety Report 12220489 (Version 1)
Quarter: 2016Q1

REPORT INFORMATION
  Report Type: Spontaneous
  Country: US (occurrence: US)
  Receive Date: 20160330
  Receipt Date: 20160330
  Transmission Date: 20160526
  Serious: No
  Sender: FDA-Public Use
  Company Number: US-MYLANLABS-2015M1011296

PATIENT
  Sex: Female
  Weight: 68.27 kg

DRUGS (4)
  1. EMSAM [Suspect]
     Active Substance: SELEGILINE
     Dosage: UNK
  2. CELECOXIB. [Suspect]
     Active Substance: CELECOXIB
     Indication: ARTHRITIS
  3. CELECOXIB. [Suspect]
     Active Substance: CELECOXIB
     Indication: NEUROPATHY PERIPHERAL
  4. CELECOXIB. [Suspect]
     Active Substance: CELECOXIB
     Indication: FIBROMYALGIA
     Dosage: 200 MG, QD

REACTIONS (2)
  - Depression [Recovered/Resolved]
  - Drug interaction [Recovered/Resolved]
